FAERS Safety Report 7280270-5 (Version None)
Quarter: 2011Q1

REPORT INFORMATION
  Report Type: 
  Country: None (occurrence: None)
  Receive Date: 20110208
  Receipt Date: 20110126
  Transmission Date: 20110831
  Serious: Yes (Other)
  Sender: FDA-Public Use
  Company Number: IT-SANOFI-AVENTIS-2011SA005157

PATIENT
  Sex: Female

DRUGS (3)
  1. MULTAQ [Suspect]
     Route: 048
     Dates: start: 20101101, end: 20110101
  2. ATORVASTATIN [Concomitant]
     Route: 048
     Dates: end: 20110101
  3. ATORVASTATIN [Concomitant]
     Route: 048
     Dates: start: 20110101

REACTIONS (3)
  - MYALGIA [None]
  - DRUG INTERACTION [None]
  - MYOPATHY [None]
